FAERS Safety Report 17920644 (Version 1)
Quarter: 2020Q2

REPORT INFORMATION
  Report Type: Report from Study
  Country: IN (occurrence: IN)
  Receive Date: 20200621
  Receipt Date: 20200621
  Transmission Date: 20200714
  Serious: Yes (Death)
  Sender: FDA-Public Use
  Company Number: PHHY2014IN092220

PATIENT
  Age: 29 Year
  Sex: Female

DRUGS (2)
  1. GLIVEC [Suspect]
     Active Substance: IMATINIB MESYLATE
     Indication: CHRONIC MYELOID LEUKAEMIA
     Dosage: 400 MG, UNK
     Route: 065
  2. GLIVEC [Suspect]
     Active Substance: IMATINIB MESYLATE
     Dosage: 600 MG ((1 X 400MG + 2 X 100MG TABLETS))
     Route: 065

REACTIONS (3)
  - Maternal exposure during pregnancy [Unknown]
  - Death [Fatal]
  - Normal newborn [Unknown]

NARRATIVE: CASE EVENT DATE: 20140612
